FAERS Safety Report 16274878 (Version 2)
Quarter: 2019Q2

REPORT INFORMATION
  Report Type: Spontaneous
  Country: JP (occurrence: JP)
  Receive Date: 20190506
  Receipt Date: 20190509
  Transmission Date: 20190711
  Serious: Yes (Other)
  Sender: FDA-Public Use
  Company Number: JP-ACCORD-125918

PATIENT
  Age: 43 Year
  Sex: Female
  Weight: 32.1 kg

DRUGS (5)
  1. CEFMETAZOLE [Suspect]
     Active Substance: CEFMETAZOLE
     Indication: PRODUCT USED FOR UNKNOWN INDICATION
     Dosage: 1 G, TWICE DAILY, 5 DAYS.
  2. TACROLIMUS. [Suspect]
     Active Substance: TACROLIMUS
     Indication: PRODUCT USED FOR UNKNOWN INDICATION
     Dosage: (0.5 MG/DAY, INCREASED TO 1 MG/DAY AFTER 18 DAYS)
     Dates: start: 2014
  3. PREDNISOLONE. [Suspect]
     Active Substance: PREDNISOLONE
     Indication: PRODUCT USED FOR UNKNOWN INDICATION
     Dosage: 11 MG/DAY
  4. SULFASALAZINE. [Suspect]
     Active Substance: SULFASALAZINE
     Indication: PRODUCT USED FOR UNKNOWN INDICATION
     Dosage: 1 G/DAY
     Dates: end: 2014
  5. IGURATIMOD [Suspect]
     Active Substance: IGURATIMOD
     Indication: PRODUCT USED FOR UNKNOWN INDICATION
     Dosage: (IGT,25 MG/DAY) INCREASED TO 50 MG/?DAY AFTER 28 DAYS
     Dates: start: 2014

REACTIONS (3)
  - Cellulitis [Unknown]
  - Escherichia infection [Unknown]
  - Corynebacterium infection [Unknown]
